FAERS Safety Report 8986445 (Version 1)
Quarter: 2012Q4

REPORT INFORMATION
  Report Type: 
  Country: US (occurrence: US)
  Receive Date: 20121227
  Receipt Date: 20121227
  Transmission Date: 20130627
  Serious: Yes (Other)
  Sender: FDA-Public Use
  Company Number: US-CELGENEUS-163-21660-12121681

PATIENT

DRUGS (4)
  1. ABRAXANE [Suspect]
     Indication: METASTATIC BREAST CANCER
     Dosage: 100 milligram/sq. meter
     Route: 041
  2. ABRAXANE [Suspect]
     Dosage: 80 milligram/sq. meter
     Route: 041
  3. LAPATINIB [Suspect]
     Indication: METASTATIC BREAST CANCER
     Dosage: 1000 Milligram
     Route: 048
  4. LAPATINIB [Suspect]
     Dosage: 750 Milligram
     Route: 048

REACTIONS (28)
  - Renal failure acute [Unknown]
  - Hypokalaemia [Unknown]
  - Weight decreased [Unknown]
  - Cellulitis [Unknown]
  - Decreased appetite [Unknown]
  - Diarrhoea [Unknown]
  - Fatigue [Unknown]
  - Nausea [Unknown]
  - Febrile neutropenia [Unknown]
  - Rash [Unknown]
  - Vomiting [Unknown]
  - Anaemia [Unknown]
  - Neutropenia [Unknown]
  - Neuropathy peripheral [Unknown]
  - Dyspnoea [Unknown]
  - Dehydration [Unknown]
  - Nail disorder [Unknown]
  - Insomnia [Unknown]
  - Dyspepsia [Unknown]
  - Dysgeusia [Unknown]
  - Pain in extremity [Unknown]
  - Pyrexia [Unknown]
  - Epistaxis [Unknown]
  - Constipation [Unknown]
  - Cough [Unknown]
  - Oedema peripheral [Unknown]
  - Alopecia [Unknown]
  - Breast cancer metastatic [Unknown]
